FAERS Safety Report 5389996-1 (Version None)
Quarter: 2007Q3

REPORT INFORMATION
  Report Type: 
  Country: None (occurrence: None)
  Receive Date: 20070710
  Receipt Date: 20070702
  Transmission Date: 20080115
  Serious: Yes (Other)
  Sender: FDA-Public Use
  Company Number: GXKR2007DE05675

PATIENT
  Age: 60 Year
  Sex: Female

DRUGS (1)
  1. PREDNISOLONE [Suspect]
     Indication: ALLERGY TO METALS
     Dosage: TOPICAL

REACTIONS (10)
  - CONDITION AGGRAVATED [None]
  - ERYTHEMA [None]
  - FLUSHING [None]
  - RASH PAPULAR [None]
  - RASH PUSTULAR [None]
  - REBOUND EFFECT [None]
  - ROSACEA [None]
  - SKIN BURNING SENSATION [None]
  - SKIN TIGHTNESS [None]
  - TENSION [None]
